FAERS Safety Report 6842007-0 (Version None)
Quarter: 2010Q3

REPORT INFORMATION
  Report Type: 
  Country: None (occurrence: None)
  Receive Date: 20100709
  Receipt Date: 20100618
  Transmission Date: 20110219
  Serious: No
  Sender: FDA-Public Use
  Company Number: MSTR-NO-1005S-0152

PATIENT
  Age: 65 Year
  Sex: Male
  Weight: 59.3 kg

DRUGS (2)
  1. METASERON (STRONTIUM SR89 CHLORIDE) [Suspect]
     Indication: BONE PAIN
     Dosage: SINGLE, DOSE, I.V.
     Route: 042
     Dates: start: 20090224, end: 20090224
  2. METASERON (STRONTIUM SR89 CHLORIDE) [Suspect]
     Indication: METASTATIC PAIN
     Dosage: SINGLE, DOSE, I.V.
     Route: 042
     Dates: start: 20090224, end: 20090224

REACTIONS (1)
  - DEATH [None]
